FAERS Safety Report 7043116-6 (Version None)
Quarter: 2010Q4

REPORT INFORMATION
  Report Type: 
  Country: None (occurrence: None)
  Receive Date: 20101013
  Receipt Date: 20100521
  Transmission Date: 20110411
  Serious: Yes (Hospitalization, Other)
  Sender: FDA-Public Use
  Company Number: US-BAYER-201014359NA

PATIENT
  Age: 23 Year
  Sex: Female
  Weight: 104 kg

DRUGS (5)
  1. YASMIN [Suspect]
     Indication: CONTRACEPTION
     Route: 048
     Dates: start: 20020101, end: 20061001
  2. AMITRIPTYLINE [Concomitant]
     Indication: MIGRAINE
     Route: 065
     Dates: start: 20010101, end: 20060101
  3. ELAVIL [Concomitant]
     Route: 065
  4. MAXALT [Concomitant]
     Route: 065
  5. AMERGE [Concomitant]
     Route: 065

REACTIONS (3)
  - ABDOMINAL PAIN UPPER [None]
  - CHOLELITHIASIS [None]
  - NAUSEA [None]
